FAERS Safety Report 12668521 (Version 1)
Quarter: 2016Q3

REPORT INFORMATION
  Report Type: Spontaneous
  Country: TR (occurrence: TR)
  Receive Date: 20160819
  Receipt Date: 20160819
  Transmission Date: 20161109
  Serious: Yes (Other)
  Sender: FDA-Public Use
  Company Number: TR-BAUSCH-BL-2016-020030

PATIENT
  Age: 42 Year
  Sex: Male

DRUGS (1)
  1. MINOXIDIL. [Suspect]
     Active Substance: MINOXIDIL
     Indication: ANDROGENETIC ALOPECIA
     Dosage: FOR 1 YEAR NAMELY TWO FOLD ITS NORMAL DOSE
     Route: 061

REACTIONS (1)
  - Optic ischaemic neuropathy [Recovered/Resolved]
